FAERS Safety Report 11537719 (Version 4)
Quarter: 2016Q4

REPORT INFORMATION
  Report Type: Spontaneous
  Country: US (occurrence: US)
  Receive Date: 20150922
  Receipt Date: 20161025
  Transmission Date: 20170206
  Serious: No
  Sender: FDA-Public Use
  Company Number: US-PFIZER INC-2015311906

PATIENT
  Age: 73 Year
  Sex: Female
  Weight: 88 kg

DRUGS (14)
  1. ADVAIR HFA [Concomitant]
     Active Substance: FLUTICASONE PROPIONATE\SALMETEROL XINAFOATE
     Indication: ASTHMA
     Dosage: 250/50 INHALER, 2X/DAY(FREQ: 2 DAY, INTERVAL: 1)
     Dates: start: 20150101
  2. TIKOSYN [Suspect]
     Active Substance: DOFETILIDE
     Indication: HEART RATE IRREGULAR
  3. ESCITALOPRAM [Concomitant]
     Active Substance: ESCITALOPRAM OXALATE
     Indication: DEPRESSION
     Dosage: 10 MG, 1X/DAY(FREQ: 1 DAY, INTERVAL: 1)
     Route: 048
     Dates: start: 20050101
  4. GABAPENTIN. [Concomitant]
     Active Substance: GABAPENTIN
     Indication: PAIN
     Dosage: 1200 MG, UNK (1 CAPSULE ALSO REPORTED AS TABLET AFTER BREAKFAST AND 1 AFTER LUNCH,AND TWO AT BEDTIM)
     Route: 048
     Dates: start: 2005
  5. TIKOSYN [Suspect]
     Active Substance: DOFETILIDE
     Indication: ATRIAL FIBRILLATION
     Dosage: 125 ?G, 2X/DAY(FREQ: 2 DAY, INTERVAL: 1)
     Route: 048
  6. XARELTO [Concomitant]
     Active Substance: RIVAROXABAN
     Indication: MYOCARDIAL ISCHAEMIA
  7. ATORVASTATIN [Concomitant]
     Active Substance: ATORVASTATIN
     Indication: BLOOD CHOLESTEROL
     Dosage: 10 MG, 1X/DAY(FREQ: 1 DAY, INTERVAL: 1)
     Route: 048
     Dates: start: 20050101
  8. XARELTO [Concomitant]
     Active Substance: RIVAROXABAN
     Indication: THROMBOSIS PROPHYLAXIS
     Dosage: 20 MG, 1X/DAY(DAILY,ALSO REPORTED AS 1 TABLET)
     Route: 048
     Dates: start: 20150101
  9. MECLIZINE HCL [Concomitant]
     Active Substance: MECLIZINE HYDROCHLORIDE
     Indication: VERTIGO
     Dosage: 12.5 MG, 1-2 TABLET 3X/DAY AS NEEDED(FREQ: 3 DAY, INTERVAL: 1)
     Route: 048
     Dates: start: 20030101
  10. TYLENOL [Concomitant]
     Active Substance: ACETAMINOPHEN
     Indication: ARTHRITIS
  11. PROPOFOL. [Suspect]
     Active Substance: PROPOFOL
     Indication: ANAESTHESIA
     Dosage: UNK
  12. TYLENOL EXTRA STRENGTH [Concomitant]
     Active Substance: ACETAMINOPHEN
     Indication: ARTHRITIS
     Dosage: 500 MG,  TAKE TWO IN MORNING FOR ARTHRITIS MIGHT TAKE AGAIN AT BEDTIME BUT NOT ALWAYS, TAKES AS NEED
     Dates: start: 2000
  13. TRAMADOL HCL [Concomitant]
     Active Substance: TRAMADOL HYDROCHLORIDE
     Indication: PRODUCT USED FOR UNKNOWN INDICATION
     Dosage: 50 MG, AS NEEDED(50MG ONE-TWO, EVERY 6 HOURS AS NEEDED, BUT NEVER TAKES TWO, ONLY TAKES ONE AND NOT)
     Route: 048
     Dates: start: 20140101
  14. PROPOFOL. [Suspect]
     Active Substance: PROPOFOL
     Indication: CARDIAC DISORDER

REACTIONS (1)
  - Memory impairment [Not Recovered/Not Resolved]

NARRATIVE: CASE EVENT DATE: 20150101
